FAERS Safety Report 7609959-2 (Version None)
Quarter: 2011Q3

REPORT INFORMATION
  Report Type: 
  Country: None (occurrence: None)
  Receive Date: 20110714
  Receipt Date: 20110705
  Transmission Date: 20111222
  Serious: Yes (Hospitalization, Other)
  Sender: FDA-Public Use
  Company Number: US-ASTRAZENECA-2010SE46100

PATIENT
  Age: 78 Year
  Sex: Female
  Weight: 53.1 kg

DRUGS (13)
  1. ARICEPT [Concomitant]
  2. OXYGEN [Concomitant]
  3. SEROQUEL [Suspect]
     Indication: AGITATION
     Route: 048
     Dates: start: 20080101
  4. SEROQUEL [Suspect]
     Route: 048
  5. PLAVIX [Concomitant]
     Indication: CEREBRAL ARTERY OCCLUSION
  6. SEROQUEL [Suspect]
     Route: 048
  7. SEROQUEL [Suspect]
     Indication: AFFECTIVE DISORDER
     Route: 048
     Dates: start: 20080101
  8. SEROQUEL [Suspect]
     Route: 048
  9. PRISTIQ [Concomitant]
     Indication: DEPRESSION
  10. VESSICARE [Concomitant]
     Indication: URINARY INCONTINENCE
  11. SEROQUEL [Suspect]
     Route: 048
  12. ASPIRIN [Concomitant]
  13. MEGATE ES [Concomitant]
     Indication: WEIGHT DECREASED

REACTIONS (8)
  - MYOCARDIAL INFARCTION [None]
  - CHRONIC OBSTRUCTIVE PULMONARY DISEASE [None]
  - DRUG INEFFECTIVE FOR UNAPPROVED INDICATION [None]
  - DEMENTIA [None]
  - EAR INFECTION [None]
  - AGITATION [None]
  - OFF LABEL USE [None]
  - SOMNOLENCE [None]
